FAERS Safety Report 8456060-4 (Version None)
Quarter: 2012Q2

REPORT INFORMATION
  Report Type: 
  Country: None (occurrence: None)
  Receive Date: 20120621
  Receipt Date: 20120613
  Transmission Date: 20120825
  Serious: Yes (Hospitalization)
  Sender: FDA-Public Use
  Company Number: PHHY2012BR051779

PATIENT
  Sex: Male
  Weight: 60 kg

DRUGS (1)
  1. TRILEPTAL [Suspect]
     Dosage: 1 TABLET A DAY
     Route: 048

REACTIONS (10)
  - CHEST DISCOMFORT [None]
  - AGITATION [None]
  - DIASTOLIC DYSFUNCTION [None]
  - HYPERTENSION [None]
  - INFARCTION [None]
  - MYOCARDIAL ISCHAEMIA [None]
  - CORONARY ARTERY DISEASE [None]
  - SUICIDAL IDEATION [None]
  - NERVOUSNESS [None]
  - VENTRICULAR DYSFUNCTION [None]
